FAERS Safety Report 19547845 (Version 1)
Quarter: 2021Q3

REPORT INFORMATION
  Report Type: Spontaneous
  Country: US (occurrence: US)
  Receive Date: 20210714
  Receipt Date: 20210714
  Transmission Date: 20211014
  Serious: Yes (Hospitalization)
  Sender: FDA-Public Use
  Company Number: None

PATIENT
  Age: 15 Year
  Weight: 45.5 kg

DRUGS (7)
  1. LETERMOVIR [Concomitant]
     Active Substance: LETERMOVIR
     Dates: start: 20210711
  2. CEFEPIME [Concomitant]
     Active Substance: CEFEPIME HYDROCHLORIDE
     Dates: start: 20210707
  3. ABATACEPT [Suspect]
     Active Substance: ABATACEPT
     Indication: PROPHYLAXIS AGAINST GRAFT VERSUS HOST DISEASE
     Dosage: ?          OTHER FREQUENCY:DAY ?1,+5,+14, +28;?
     Route: 042
     Dates: start: 20201109, end: 20210408
  4. ACYCLOVIR. [Concomitant]
     Active Substance: ACYCLOVIR
     Dates: start: 20210713
  5. TACROLIMUS. [Concomitant]
     Active Substance: TACROLIMUS
     Dates: start: 20210711
  6. AZITHROMYCIN ANHYDROUS. [Concomitant]
     Active Substance: AZITHROMYCIN ANHYDROUS
     Dates: start: 20210711
  7. METHYLPREDNISOLONE. [Concomitant]
     Active Substance: METHYLPREDNISOLONE
     Dates: start: 20210711

REACTIONS (6)
  - Tachypnoea [None]
  - Obliterative bronchiolitis [None]
  - Graft versus host disease [None]
  - Pneumocystis jirovecii pneumonia [None]
  - Apoptotic colonopathy [None]
  - Hypoxia [None]

NARRATIVE: CASE EVENT DATE: 20210707
